FAERS Safety Report 6064674-4 (Version None)
Quarter: 2009Q1

REPORT INFORMATION
  Report Type: 
  Country: None (occurrence: None)
  Receive Date: 20090204
  Receipt Date: 20080421
  Transmission Date: 20090719
  Serious: No
  Sender: FDA-Public Use
  Company Number: A0723859A

PATIENT
  Sex: Female

DRUGS (1)
  1. ARIXTRA [Suspect]
     Route: 058
     Dates: start: 20070101

REACTIONS (1)
  - PLATELET ADHESIVENESS INCREASED [None]
